FAERS Safety Report 5831888-5 (Version None)
Quarter: 2008Q3

REPORT INFORMATION
  Report Type: 
  Country: None (occurrence: None)
  Receive Date: 20080731
  Receipt Date: 20080724
  Transmission Date: 20090109
  Serious: No
  Sender: FDA-Public Use
  Company Number: LTI2008A00165

PATIENT
  Age: 61 Year
  Sex: Male

DRUGS (6)
  1. ACTOS [Suspect]
     Indication: TYPE 2 DIABETES MELLITUS
     Dosage: 15 MG (15 MG, 1 IN 1 D)
     Route: 048
     Dates: start: 20080116, end: 20080328
  2. KARDEGIC (ACETYLSALICYLATE LYSINE) [Concomitant]
  3. GLYBURIDE [Concomitant]
  4. ZOCOR [Concomitant]
  5. COVERSYL (PERIDOPRIL) [Concomitant]
  6. LANTUS [Concomitant]

REACTIONS (4)
  - INFLAMMATION [None]
  - JOINT EFFUSION [None]
  - OEDEMA PERIPHERAL [None]
  - PAIN IN EXTREMITY [None]
